APPROVED DRUG PRODUCT: HYDROCHLOROTHIAZIDE
Active Ingredient: HYDROCHLOROTHIAZIDE
Strength: 12.5MG
Dosage Form/Route: CAPSULE;ORAL
Application: A091662 | Product #001
Applicant: CHARTWELL MOLECULAR HOLDINGS LLC
Approved: Jan 27, 2012 | RLD: No | RS: No | Type: DISCN